FAERS Safety Report 9905708 (Version 2)
Quarter: 2014Q1

REPORT INFORMATION
  Report Type: Spontaneous
  Country: US (occurrence: US)
  Receive Date: 20140218
  Receipt Date: 20140218
  Transmission Date: 20141002
  Serious: No
  Sender: FDA-Public Use
  Company Number: US-GILEAD-2012-0048807

PATIENT
  Sex: Male

DRUGS (2)
  1. LETAIRIS [Suspect]
     Indication: PRODUCT USED FOR UNKNOWN INDICATION
     Dosage: 5 MG, UNK
     Route: 048
     Dates: start: 20111202, end: 20120109
  2. LETAIRIS [Suspect]
     Dosage: 5 UNK, UNK
     Route: 048

REACTIONS (4)
  - Dizziness [Unknown]
  - Swelling face [Unknown]
  - Local swelling [Unknown]
  - Nausea [Unknown]
